FAERS Safety Report 6743161-1 (Version None)
Quarter: 2010Q2

REPORT INFORMATION
  Report Type: 
  Country: None (occurrence: None)
  Receive Date: 20100527
  Receipt Date: 20100517
  Transmission Date: 20101027
  Serious: Yes (Other)
  Sender: FDA-Public Use
  Company Number: US-ASTRAZENECA-2007UW11641

PATIENT
  Sex: Male

DRUGS (3)
  1. SEROQUEL [Suspect]
     Indication: INSOMNIA
     Dosage: 100 MG
     Route: 048
     Dates: start: 20010113
  2. SERTRALINE HCL [Concomitant]
     Dosage: 100 MG TO 150 MG
     Route: 048
     Dates: start: 20011105
  3. GABAPENTIN [Concomitant]
     Dosage: 100 MG TO 600 MG
     Route: 048
     Dates: start: 20011105

REACTIONS (2)
  - DIABETES MELLITUS [None]
  - DIABETIC NEUROPATHY [None]
